FAERS Safety Report 18283654 (Version 4)
Quarter: 2022Q1

REPORT INFORMATION
  Report Type: Spontaneous
  Country: US (occurrence: US)
  Receive Date: 20200918
  Receipt Date: 20220312
  Transmission Date: 20220423
  Serious: No
  Sender: FDA-Public Use
  Company Number: US-PFIZER INC-2020359657

PATIENT
  Age: 54 Year
  Sex: Male
  Weight: 104.33 kg

DRUGS (2)
  1. SOMAVERT [Suspect]
     Active Substance: PEGVISOMANT
     Indication: Acromegaly
     Dosage: 10 MG, DAILY
     Dates: start: 202005
  2. SOMAVERT [Suspect]
     Active Substance: PEGVISOMANT
     Indication: Neoplasm
     Dosage: 20 MG, DAILY

REACTIONS (3)
  - Memory impairment [Unknown]
  - Anxiety [Unknown]
  - Malaise [Not Recovered/Not Resolved]
